FAERS Safety Report 9106153 (Version 4)
Quarter: 2013Q2

REPORT INFORMATION
  Report Type: Spontaneous
  Country: BG (occurrence: BG)
  Receive Date: 20130221
  Receipt Date: 20130429
  Transmission Date: 20140414
  Serious: Yes (Life-Threatening, Hospitalization)
  Sender: FDA-Public Use
  Company Number: PHHY2013BG017135

PATIENT
  Age: 45 Year
  Sex: Male
  Weight: 80 kg

DRUGS (1)
  1. TASIGNA [Suspect]
     Indication: CHRONIC MYELOID LEUKAEMIA
     Dosage: 600 MG,DAILY
     Route: 048
     Dates: start: 20120315, end: 20130218

REACTIONS (4)
  - Acute myocardial infarction [Unknown]
  - Cardiogenic shock [Unknown]
  - Myocardial ischaemia [Unknown]
  - Cardiac failure [Unknown]
